FAERS Safety Report 17150095 (Version 1)
Quarter: 2019Q4

REPORT INFORMATION
  Report Type: Report from Study
  Country: US (occurrence: US)
  Receive Date: 20191213
  Receipt Date: 20191213
  Transmission Date: 20200122
  Serious: Yes (Hospitalization, Other)
  Sender: FDA-Public Use
  Company Number: NVSC2019US005299

PATIENT
  Age: 26 Year
  Sex: Male

DRUGS (5)
  1. SB497115 [Suspect]
     Active Substance: ELTROMBOPAG
     Dosage: 150 MG, QD
     Route: 048
     Dates: start: 20190724
  2. SANDIMMUNE [Suspect]
     Active Substance: CYCLOSPORINE
     Dosage: 325 MG, BID
     Route: 065
     Dates: start: 20190604, end: 20191119
  3. SB497115 [Suspect]
     Active Substance: ELTROMBOPAG
     Indication: APLASTIC ANAEMIA
     Dosage: UNK
     Route: 048
     Dates: start: 20180802
  4. ANTITHYMOCYTE IMMUNOGLOBULIN [Suspect]
     Active Substance: THYMOCYTE IMMUNE GLOBULIN NOS
     Indication: APLASTIC ANAEMIA
     Dosage: UNK
     Route: 065
     Dates: start: 20180802
  5. SANDIMMUNE [Suspect]
     Active Substance: CYCLOSPORINE
     Indication: APLASTIC ANAEMIA
     Dosage: UNK
     Route: 065
     Dates: start: 20180802

REACTIONS (8)
  - Chills [Unknown]
  - Nausea [Unknown]
  - Oral pain [Unknown]
  - Febrile neutropenia [Unknown]
  - Cough [Unknown]
  - Vomiting [Unknown]
  - Oropharyngeal pain [Unknown]
  - Pain [Unknown]

NARRATIVE: CASE EVENT DATE: 20190929
